FAERS Safety Report 7106048-0 (Version None)
Quarter: 2010Q4

REPORT INFORMATION
  Report Type: 
  Country: None (occurrence: None)
  Receive Date: 20101116
  Receipt Date: 20101108
  Transmission Date: 20110411
  Serious: Yes (Other)
  Sender: FDA-Public Use
  Company Number: FR-ABBOTT-10P-056-0684032-00

PATIENT
  Age: 77 Year
  Sex: Female

DRUGS (3)
  1. VERCYTE [Suspect]
     Indication: PRODUCT USED FOR UNKNOWN INDICATION
     Dates: end: 20100602
  2. CEFPODOXIME PROXETIL [Suspect]
     Indication: PHARYNGITIS
     Dates: start: 20100530, end: 20100602
  3. CEFPODOXIME PROXETIL [Suspect]
     Dates: start: 20100101

REACTIONS (1)
  - NEUTROPENIA [None]
